FAERS Safety Report 4976670-6 (Version None)
Quarter: 2006Q2

REPORT INFORMATION
  Report Type: 
  Country: None (occurrence: None)
  Receive Date: 20060419
  Receipt Date: 20041006
  Transmission Date: 20061013
  Serious: Yes (Life-Threatening, Hospitalization, Disabling)
  Sender: FDA-Public Use
  Company Number: US-MERCK-0410USA00840

PATIENT
  Age: 51 Year
  Sex: Male
  Weight: 73 kg

DRUGS (10)
  1. VIOXX [Suspect]
     Indication: BACK PAIN
     Route: 048
     Dates: start: 20010912, end: 20040401
  2. VIOXX [Suspect]
     Indication: INFLAMMATION
     Route: 048
     Dates: start: 20010912, end: 20040401
  3. WELLBUTRIN [Concomitant]
     Route: 065
  4. SEROQUEL [Concomitant]
     Route: 065
  5. ACIPHEX [Concomitant]
     Route: 065
  6. ZOCOR [Concomitant]
     Route: 065
  7. NIASPAN [Concomitant]
     Route: 065
  8. VICODIN [Concomitant]
     Route: 065
  9. XANAX [Concomitant]
     Route: 065
  10. TYLENOL (CAPLET) [Concomitant]
     Route: 065

REACTIONS (32)
  - ANAEMIA POSTOPERATIVE [None]
  - ANXIETY [None]
  - BACK INJURY [None]
  - BACK PAIN [None]
  - CALCULUS URETERIC [None]
  - CARDIOMEGALY [None]
  - CHEST PAIN [None]
  - CORONARY ARTERY DISEASE [None]
  - DEPRESSION [None]
  - DYSLIPIDAEMIA [None]
  - DYSPNOEA [None]
  - EAR DISCOMFORT [None]
  - EAR PRURITUS [None]
  - FATIGUE [None]
  - GAIT DISTURBANCE [None]
  - GASTROOESOPHAGEAL REFLUX DISEASE [None]
  - HEADACHE [None]
  - HYDRONEPHROSIS [None]
  - HYPERCHOLESTEROLAEMIA [None]
  - INTERVERTEBRAL DISC DEGENERATION [None]
  - INTERVERTEBRAL DISC PROTRUSION [None]
  - NECK PAIN [None]
  - NEPHROLITHIASIS [None]
  - NIPPLE PAIN [None]
  - OSTEOARTHRITIS [None]
  - OVERDOSE [None]
  - PARAESTHESIA [None]
  - RADICULOPATHY [None]
  - RENAL COLIC [None]
  - SINUS BRADYCARDIA [None]
  - STRESS [None]
  - TREMOR [None]
